FAERS Safety Report 7043831-4 (Version None)
Quarter: 2010Q4

REPORT INFORMATION
  Report Type: 
  Country: None (occurrence: None)
  Receive Date: 20101008
  Receipt Date: 20101008
  Transmission Date: 20110411
  Serious: No
  Sender: FDA-Public Use
  Company Number: None

PATIENT
  Sex: Female
  Weight: 76.6 kg

DRUGS (1)
  1. ZOMETA [Suspect]
     Indication: MALIGNANT PLEURAL EFFUSION
     Dosage: ZOMETA 3.5 MG ONCE IV
     Route: 042
     Dates: start: 20100827

REACTIONS (2)
  - RASH ERYTHEMATOUS [None]
  - RASH PRURITIC [None]
